FAERS Safety Report 26137613 (Version 1)
Quarter: 2025Q4

REPORT INFORMATION
  Report Type: Report from Study
  Country: US (occurrence: US)
  Receive Date: 20251209
  Receipt Date: 20251209
  Transmission Date: 20260118
  Serious: No
  Sender: SANDOZ
  Company Number: US-SANDOZ-SDZ2025US092577

PATIENT
  Sex: Female

DRUGS (1)
  1. GLATOPA [Suspect]
     Active Substance: GLATIRAMER ACETATE
     Indication: Multiple sclerosis
     Dosage: 40 MG, Q48H
     Route: 058

REACTIONS (12)
  - Scab [Unknown]
  - Skin discolouration [Unknown]
  - Scar [Unknown]
  - Skin pressure mark [Unknown]
  - Mass [Unknown]
  - Erythema [Unknown]
  - Wrong device used [Unknown]
  - Multiple use of single-use product [Unknown]
  - Incorrect dose administered by device [Unknown]
  - Wrong technique in device usage process [Unknown]
  - Device issue [Unknown]
  - Device power source issue [Unknown]
